FAERS Safety Report 11097995 (Version 1)
Quarter: 2015Q2

REPORT INFORMATION
  Report Type: Spontaneous
  Country: US (occurrence: US)
  Receive Date: 20150507
  Receipt Date: 20150507
  Transmission Date: 20150821
  Serious: No
  Sender: FDA-Public Use
  Company Number: US-PFIZER INC-2015152189

PATIENT
  Age: 56 Year
  Sex: Female
  Weight: 49 kg

DRUGS (3)
  1. LYRICA [Suspect]
     Active Substance: PREGABALIN
     Dosage: 150 MG, 1X/DAY (75 MG TWO AT NIGHT)
  2. ROBAXIN [Concomitant]
     Active Substance: METHOCARBAMOL
     Indication: BONE CANCER
     Dosage: 500 MG, UNK
  3. OXYCODONE [Concomitant]
     Active Substance: OXYCODONE
     Indication: BONE CANCER
     Dosage: 15 MG, UNK

REACTIONS (2)
  - Depressed mood [Unknown]
  - Somnolence [Unknown]
